FAERS Safety Report 10156111 (Version 1)
Quarter: 2014Q2

REPORT INFORMATION
  Report Type: Report from Study
  Country: US (occurrence: US)
  Receive Date: 20140506
  Receipt Date: 20140506
  Transmission Date: 20141212
  Serious: Yes (Hospitalization)
  Sender: FDA-Public Use
  Company Number: PHEH2014US009062

PATIENT
  Sex: Male

DRUGS (8)
  1. TOBI PODHALER [Suspect]
     Indication: CYSTIC FIBROSIS
     Dosage: 112 MG, BID
     Route: 055
     Dates: start: 201307, end: 201307
  2. MUCINEX [Suspect]
     Dosage: UNK
  3. ALBUTEROL [Concomitant]
     Dosage: UNK UKN, UNK
  4. PULMOZYME [Concomitant]
     Dosage: UNK UKN, UNK
  5. CAYSTON [Concomitant]
     Dosage: UNK UKN, UNK
  6. CREON [Concomitant]
     Dosage: UNK UKN, UNK
  7. VITAMAN [Concomitant]
     Dosage: UNK UKN, UNK
  8. ERYTHROMYCIN [Concomitant]
     Dosage: UNK UKN, UNK

REACTIONS (1)
  - Pulmonary pain [Recovering/Resolving]
